FAERS Safety Report 7268676-1 (Version None)
Quarter: 2011Q1

REPORT INFORMATION
  Report Type: 
  Country: None (occurrence: None)
  Receive Date: 20110124
  Receipt Date: 20110111
  Transmission Date: 20110831
  Serious: Yes (Life-Threatening)
  Sender: FDA-Public Use
  Company Number: 803938

PATIENT
  Age: 17 Year
  Sex: Female

DRUGS (14)
  1. ETOPOSIDE [Suspect]
     Indication: GESTATIONAL TROPHOBLASTIC TUMOUR
  2. ETOPOSIDE [Suspect]
     Indication: METASTASIS
  3. DACTINOMYCIN [Suspect]
     Indication: GESTATIONAL TROPHOBLASTIC TUMOUR
  4. DACTINOMYCIN [Suspect]
     Indication: METASTASIS
  5. CYCLOPHOSPHAMIDE [Suspect]
     Indication: METASTASIS
  6. CYCLOPHOSPHAMIDE [Suspect]
     Indication: GESTATIONAL TROPHOBLASTIC TUMOUR
  7. VINCRISTINE SULFATE [Suspect]
     Indication: GESTATIONAL TROPHOBLASTIC TUMOUR
  8. VINCRISTINE SULFATE [Suspect]
     Indication: METASTASIS
  9. METHOTREXATE [Suspect]
     Indication: GESTATIONAL TROPHOBLASTIC TUMOUR
  10. METHOTREXATE [Suspect]
     Indication: METASTASIS
  11. PROPYLTHIOURACIL [Concomitant]
  12. CHOLESTYRAMINE [Concomitant]
  13. (PROPRANOLOL) [Concomitant]
  14. DEXAMETHASONE [Concomitant]

REACTIONS (12)
  - NAUSEA [None]
  - DEEP VEIN THROMBOSIS [None]
  - CARDIAC FAILURE CONGESTIVE [None]
  - FUNGAEMIA [None]
  - TUMOUR LYSIS SYNDROME [None]
  - UPPER GASTROINTESTINAL HAEMORRHAGE [None]
  - VOMITING [None]
  - DEHYDRATION [None]
  - PULMONARY OEDEMA [None]
  - RENAL FAILURE ACUTE [None]
  - BLOOD LACTATE DEHYDROGENASE INCREASED [None]
  - OESOPHAGITIS [None]
